FAERS Safety Report 5314865-2 (Version None)
Quarter: 2007Q2

REPORT INFORMATION
  Report Type: 
  Country: None (occurrence: None)
  Receive Date: 20070502
  Receipt Date: 20070419
  Transmission Date: 20071010
  Serious: Yes (Hospitalization)
  Sender: FDA-Public Use
  Company Number: US-AMGEN-US221109

PATIENT
  Sex: Male

DRUGS (9)
  1. EPOGEN [Suspect]
     Indication: DIALYSIS
     Route: 042
     Dates: start: 20030101, end: 20070411
  2. NEPHROCAPS [Concomitant]
  3. XANAX [Concomitant]
  4. ATIVAN [Concomitant]
  5. LIPITOR [Concomitant]
  6. REGLAN [Concomitant]
  7. PHOSLO [Concomitant]
  8. TRENTAL [Concomitant]
  9. ZOLOFT [Concomitant]

REACTIONS (4)
  - BLOOD ERYTHROPOIETIN INCREASED [None]
  - DECUBITUS ULCER [None]
  - HAEMOGLOBIN DECREASED [None]
  - INFECTION [None]
